FAERS Safety Report 16929894 (Version 2)
Quarter: 2019Q4

REPORT INFORMATION
  Report Type: Spontaneous
  Country: TW (occurrence: TW)
  Receive Date: 20191017
  Receipt Date: 20191209
  Transmission Date: 20200122
  Serious: Yes (Hospitalization)
  Sender: FDA-Public Use
  Company Number: TW-BAYER-2019-181687

PATIENT
  Age: 65 Year
  Sex: Female

DRUGS (2)
  1. FOLFIRI [Concomitant]
     Active Substance: FLUOROURACIL\IRINOTECAN\LEUCOVORIN
     Indication: COLORECTAL CANCER METASTATIC
     Dosage: UNK
     Dates: start: 20190725
  2. STIVARGA [Suspect]
     Active Substance: REGORAFENIB
     Indication: COLORECTAL CANCER METASTATIC
     Dosage: UNK
     Route: 048
     Dates: start: 20190725, end: 20191001

REACTIONS (3)
  - Nausea [None]
  - Coma hepatic [Not Recovered/Not Resolved]
  - Vomiting [None]

NARRATIVE: CASE EVENT DATE: 20191001
